FAERS Safety Report 17971396 (Version 1)
Quarter: 2020Q3

REPORT INFORMATION
  Report Type: Spontaneous
  Country: GB (occurrence: GB)
  Receive Date: 20200702
  Receipt Date: 20200702
  Transmission Date: 20201103
  Serious: Yes (Other)
  Sender: FDA-Public Use
  Company Number: GB-ACCORD-187704

PATIENT
  Age: 74 Year
  Sex: Female
  Weight: 52 kg

DRUGS (18)
  1. AMITRIPTYLINE [Suspect]
     Active Substance: AMITRIPTYLINE
     Indication: PRODUCT USED FOR UNKNOWN INDICATION
     Dosage: AT NIGHT. 2 DOSES
     Dates: start: 20200527
  2. BENDROFLUMETHIAZIDE [Concomitant]
     Active Substance: BENDROFLUMETHIAZIDE
     Dosage: EACH MORNING
     Dates: start: 20190716
  3. DOSULEPIN HYDROCHLORIDE [Concomitant]
     Active Substance: DOTHIEPIN HYDROCHLORIDE
     Dosage: AT NIGHT
     Dates: start: 20190910
  4. NAPROXEN. [Concomitant]
     Active Substance: NAPROXEN
     Dates: start: 20200506, end: 20200520
  5. BALNEUM [Concomitant]
     Dosage: USE AS DIRECTED
     Dates: start: 20191008
  6. CETIRIZINE [Concomitant]
     Active Substance: CETIRIZINE HYDROCHLORIDE
     Dosage: AS PER DERMATOLOGY
     Dates: start: 20191008
  7. CODEINE PHOSPHATE/PARACETAMOL [Concomitant]
     Active Substance: ACETAMINOPHEN\CODEINE PHOSPHATE
     Dosage: TAKE 1?2 TABLETS TWICE A DAY
     Dates: start: 20200612
  8. SIMVASTATIN. [Concomitant]
     Active Substance: SIMVASTATIN
     Indication: BLOOD CHOLESTEROL INCREASED
     Dosage: AT NIGHT
     Dates: start: 20191231
  9. CROMOGLICIC ACID [Concomitant]
     Active Substance: CROMOLYN
     Dates: start: 20190716
  10. MEBEVERINE [Concomitant]
     Active Substance: MEBEVERINE
     Dates: start: 20191231
  11. OMEPRAZOLE. [Concomitant]
     Active Substance: OMEPRAZOLE
     Dates: start: 20191231
  12. DOUBLEBASE [Concomitant]
     Active Substance: ISOPROPYL MYRISTATE\PARAFFIN
     Indication: DRY SKIN
     Dates: start: 20200512, end: 20200513
  13. PROPRANOLOL [Concomitant]
     Active Substance: PROPRANOLOL HYDROCHLORIDE
     Indication: ANXIETY
     Dosage: DAILY
     Dates: start: 20191231
  14. DERMACOL [Concomitant]
     Active Substance: COSMETICS
     Dosage: APPLY
     Dates: start: 20191008
  15. SENNA ALEXANDRINA [Concomitant]
     Active Substance: SENNA LEAF
     Dosage: AT NIGHT
     Dates: start: 20190716
  16. LAXIDO [Concomitant]
     Active Substance: POLYETHYLENE GLYCOL 3350\POTASSIUM CHLORIDE\SODIUM BICARBONATE\SODIUM CHLORIDE
     Dosage: USE AS DIRECTED
     Dates: start: 20200527
  17. DOCUSATE [Concomitant]
     Active Substance: DOCUSATE
     Dates: start: 20200601
  18. IBUPROFEN. [Concomitant]
     Active Substance: IBUPROFEN
     Dosage: APPLY 3?4 TIMES/DAY
     Dates: start: 20200527, end: 20200610

REACTIONS (3)
  - Loss of consciousness [Unknown]
  - Nausea [Unknown]
  - Dizziness postural [Recovered/Resolved]
